FAERS Safety Report 14689553 (Version 2)
Quarter: 2018Q2

REPORT INFORMATION
  Report Type: Spontaneous
  Country: JP (occurrence: JP)
  Receive Date: 20180328
  Receipt Date: 20180402
  Transmission Date: 20180711
  Serious: Yes (Other)
  Sender: FDA-Public Use
  Company Number: JP-TEVA-2018-JP-876186

PATIENT
  Age: 48 Year
  Sex: Female
  Weight: 54 kg

DRUGS (3)
  1. BETANAMIN [Suspect]
     Active Substance: PEMOLINE
     Indication: NARCOLEPSY
     Dosage: 50 MILLIGRAM DAILY;
     Route: 048
     Dates: start: 20160415
  2. MODIODAL TABLETS 100MG [Suspect]
     Active Substance: MODAFINIL
     Dosage: 100 MILLIGRAM DAILY;
     Route: 048
     Dates: start: 20180227
  3. MODIODAL TABLETS 100MG [Suspect]
     Active Substance: MODAFINIL
     Indication: NARCOLEPSY
     Dosage: 200 MILLIGRAM DAILY;
     Route: 048
     Dates: start: 20160415

REACTIONS (1)
  - Delirium [Recovered/Resolved]

NARRATIVE: CASE EVENT DATE: 20180227
